FAERS Safety Report 5231595-6 (Version None)
Quarter: 2007Q1

REPORT INFORMATION
  Report Type: 
  Country: None (occurrence: None)
  Receive Date: 20061201
  Receipt Date: 20060914
  Transmission Date: 20070707
  Serious: No
  Sender: FDA-Public Use
  Company Number: 2006PV021199

PATIENT
  Age: 59 Year
  Sex: Male

DRUGS (17)
  1. BYETTA [Suspect]
     Indication: DIABETES MELLITUS NON-INSULIN-DEPENDENT
     Dosage: SEE IMAGE
     Route: 058
     Dates: start: 20060701, end: 20060906
  2. BYETTA [Suspect]
     Indication: DIABETES MELLITUS NON-INSULIN-DEPENDENT
     Dosage: SEE IMAGE
     Route: 058
     Dates: start: 20060907, end: 20060912
  3. CLONIDINE [Suspect]
     Indication: BLOOD PRESSURE
     Dosage: 0.25 MG
     Dates: start: 20060801
  4. NOVOLIN 70/30 [Concomitant]
  5. GLIMEPIRIDE [Concomitant]
  6. NORVASC [Concomitant]
  7. METOLAZONE [Concomitant]
  8. COREG [Concomitant]
  9. ISOSORBIDE [Concomitant]
  10. PLAVIX [Concomitant]
  11. NITROGLYCERIN [Concomitant]
  12. NITROGLYCERIN [Concomitant]
  13. VYTORIN [Concomitant]
  14. LIPITOR [Concomitant]
  15. POTASSIUM ACETATE [Concomitant]
  16. FUROSEMIDE [Concomitant]
  17. QUININE [Concomitant]

REACTIONS (6)
  - ABDOMINAL DISTENSION [None]
  - BLOOD GLUCOSE INCREASED [None]
  - DECREASED APPETITE [None]
  - DYSPEPSIA [None]
  - HEADACHE [None]
  - HYPERTENSION [None]
